FAERS Safety Report 6884682-0 (Version None)
Quarter: 2010Q3

REPORT INFORMATION
  Report Type: 
  Country: None (occurrence: None)
  Receive Date: 20100729
  Receipt Date: 20070814
  Transmission Date: 20110219
  Serious: No
  Sender: FDA-Public Use
  Company Number: US-PFIZER INC-2007066412

PATIENT
  Sex: Female

DRUGS (3)
  1. CELEBREX [Suspect]
     Indication: ARTHRITIS
  2. LYRICA [Concomitant]
     Indication: FIBROMYALGIA
  3. DARVOCET [Concomitant]
     Indication: NEURALGIA

REACTIONS (1)
  - DRUG INEFFECTIVE [None]
